FAERS Safety Report 13503490 (Version 2)
Quarter: 2017Q4

REPORT INFORMATION
  Report Type: Report from Study
  Country: JP (occurrence: JP)
  Receive Date: 20170502
  Receipt Date: 20171009
  Transmission Date: 20180320
  Serious: Yes (Death, Hospitalization)
  Sender: FDA-Public Use
  Company Number: JP-ACTELION-A-CH2017-152938

PATIENT
  Age: 18 Year
  Sex: Male
  Weight: 37.6 kg

DRUGS (9)
  1. REVATIO [Concomitant]
     Active Substance: SILDENAFIL CITRATE
  2. LASIX [Concomitant]
     Active Substance: FUROSEMIDE
  3. OPSUMIT [Suspect]
     Active Substance: MACITENTAN
     Indication: PULMONARY ARTERIAL HYPERTENSION
     Dosage: 3 MG, QD
     Route: 048
     Dates: start: 20160613, end: 20160624
  4. ASPARA-CA [Concomitant]
     Active Substance: CALCIUM ASPARTATE
  5. SAMSCA [Concomitant]
     Active Substance: TOLVAPTAN
  6. ALDACTONE A [Concomitant]
     Active Substance: SPIRONOLACTONE
  7. PREDONINE [Concomitant]
     Active Substance: PREDNISOLONE
  8. RENIVACE [Concomitant]
     Active Substance: ENALAPRIL
  9. WARFARIN [Concomitant]
     Active Substance: WARFARIN

REACTIONS (7)
  - Haemorrhagic diathesis [Fatal]
  - Protein total decreased [Not Recovered/Not Resolved]
  - Hepatic cirrhosis [Fatal]
  - Multiple organ dysfunction syndrome [Fatal]
  - Hypoproteinaemia [Not Recovered/Not Resolved]
  - Concomitant disease aggravated [Not Recovered/Not Resolved]
  - Blood albumin decreased [Not Recovered/Not Resolved]

NARRATIVE: CASE EVENT DATE: 20160617
